FAERS Safety Report 10607432 (Version 1)
Quarter: 2014Q4

REPORT INFORMATION
  Report Type: Spontaneous
  Country: US (occurrence: None)
  Receive Date: 20141124
  Receipt Date: 20141124
  Transmission Date: 20150529
  Serious: Yes (Hospitalization)
  Sender: FDA-Public Use
  Company Number: None

PATIENT
  Age: 76 Year
  Sex: Female
  Weight: 70.4 kg

DRUGS (15)
  1. DIGOXIN. [Concomitant]
     Active Substance: DIGOXIN
  2. LOSARTAN [Concomitant]
     Active Substance: LOSARTAN
  3. PRILOSEC [Concomitant]
     Active Substance: OMEPRAZOLE MAGNESIUM
  4. LASIX [Concomitant]
     Active Substance: FUROSEMIDE
  5. SYNTHROID [Concomitant]
     Active Substance: LEVOTHYROXINE SODIUM
  6. COUMADIN [Suspect]
     Active Substance: WARFARIN SODIUM
     Indication: ATRIAL FIBRILLATION
     Dosage: DATE OF USE: RECENT X 2 MONTHS AGO
     Route: 048
  7. ASA [Suspect]
     Active Substance: ASPIRIN
     Indication: AORTIC VALVE REPLACEMENT
     Dosage: 325MG, DAILY, PO
     Route: 048
  8. ASA [Suspect]
     Active Substance: ASPIRIN
     Dosage: 325MG, DAILY, PO
     Route: 048
  9. VITAMIN B12 [Concomitant]
     Active Substance: CYANOCOBALAMIN
  10. CA+ VIT D [Concomitant]
  11. LANTUS [Concomitant]
     Active Substance: INSULIN GLARGINE
  12. NAPROXEN. [Suspect]
     Active Substance: NAPROXEN
     Route: 048
  13. TERAZOSIN [Concomitant]
     Active Substance: TERAZOSIN\TERAZOSIN HYDROCHLORIDE
  14. SENOKOT [Concomitant]
     Active Substance: SENNOSIDES
  15. ZYRTEC [Concomitant]
     Active Substance: CETIRIZINE HYDROCHLORIDE

REACTIONS (4)
  - Epistaxis [None]
  - Drug interaction [None]
  - Hypotension [None]
  - Presyncope [None]

NARRATIVE: CASE EVENT DATE: 20140612
